FAERS Safety Report 10436302 (Version 1)
Quarter: 2014Q3

REPORT INFORMATION
  Report Type: Spontaneous
  Country: DK (occurrence: DK)
  Receive Date: 20140908
  Receipt Date: 20140908
  Transmission Date: 20150326
  Serious: Yes (Other)
  Sender: FDA-Public Use
  Company Number: DK-SHIRE-DK201405343

PATIENT
  Age: 18 Year
  Sex: Male
  Weight: 75 kg

DRUGS (1)
  1. ELVANSE [Suspect]
     Active Substance: LISDEXAMFETAMINE DIMESYLATE
     Indication: ATTENTION DEFICIT/HYPERACTIVITY DISORDER
     Dosage: STYRKE: 30 MG.
     Route: 048
     Dates: start: 20140627, end: 20140820

REACTIONS (4)
  - Delusional perception [Unknown]
  - Depressed mood [Unknown]
  - Off label use [Recovered/Resolved]
  - Persecutory delusion [Unknown]

NARRATIVE: CASE EVENT DATE: 20140627
